FAERS Safety Report 10249199 (Version 1)
Quarter: 2014Q2

REPORT INFORMATION
  Report Type: Spontaneous
  Country: US (occurrence: None)
  Receive Date: 20140619
  Receipt Date: 20140619
  Transmission Date: 20141212
  Serious: Yes (Other)
  Sender: FDA-Public Use
  Company Number: None

PATIENT
  Age: 66 Year
  Sex: Male
  Weight: 99.79 kg

DRUGS (1)
  1. NEXIUM [Suspect]
     Indication: OESOPHAGEAL ULCER
     Dosage: 1 PILL  ONCE DAILY TAKEN BY MOUTH
     Route: 048

REACTIONS (3)
  - Agitation [None]
  - Anger [None]
  - Personality change [None]
